FAERS Safety Report 7982939-3 (Version None)
Quarter: 2011Q4

REPORT INFORMATION
  Report Type: 
  Country: None (occurrence: None)
  Receive Date: 20111215
  Receipt Date: 20111205
  Transmission Date: 20120403
  Serious: Yes (Hospitalization, Other)
  Sender: FDA-Public Use
  Company Number: ES-B.I. PHARMACEUTICALS,INC./RIDGEFIELD-2011-EU-00933GD

PATIENT
  Sex: Female

DRUGS (3)
  1. CARBIDOPA + LEVODOPA [Suspect]
     Dosage: SIX MONTHS AFTER DDS BEGAN TO TAKE MORE DOSES OF LEVODOPA THAN PRESCRIBED
  2. PRAMIPEXOLE DIHYDROCHLORIDE [Suspect]
     Indication: PARKINSON'S DISEASE
     Dosage: 2.1 MG
  3. CARBIDOPA + LEVODOPA [Suspect]
     Indication: PARKINSON'S DISEASE
     Dosage: LEVODOPA/CARBIDOPA 600/60 MG

REACTIONS (3)
  - DOPAMINE DYSREGULATION SYNDROME [None]
  - INTENTIONAL DRUG MISUSE [None]
  - CHOREA [None]
